FAERS Safety Report 20655985 (Version 1)
Quarter: 2022Q1

REPORT INFORMATION
  Report Type: Spontaneous
  Country: US (occurrence: US)
  Receive Date: 20220330
  Receipt Date: 20220330
  Transmission Date: 20220423
  Serious: No
  Sender: FDA-Public Use
  Company Number: US-AMGEN-USASP2022055110

PATIENT
  Age: 49 Year
  Sex: Female

DRUGS (4)
  1. OTEZLA [Suspect]
     Active Substance: APREMILAST
     Indication: Psoriasis
     Dosage: UNK
     Route: 065
  2. OTEZLA [Suspect]
     Active Substance: APREMILAST
     Indication: Spondylitis
  3. DUPILUMAB [Concomitant]
     Active Substance: DUPILUMAB
     Indication: Psoriasis
  4. DUPILUMAB [Concomitant]
     Active Substance: DUPILUMAB
     Indication: Spondylitis

REACTIONS (1)
  - Pruritus [Unknown]
